FAERS Safety Report 15721471 (Version 24)
Quarter: 2023Q2

REPORT INFORMATION
  Report Type: Other
  Country: CA (occurrence: CA)
  Receive Date: 20181214
  Receipt Date: 20230411
  Transmission Date: 20230721
  Serious: Yes (Other)
  Sender: FDA-Public Use
  Company Number: CA-ROCHE-2133198

PATIENT
  Age: 39 Year
  Sex: Female

DRUGS (20)
  1. OCREVUS [Suspect]
     Active Substance: OCRELIZUMAB
     Indication: Relapsing-remitting multiple sclerosis
     Dosage: HALF DOSE (1 AND 2)?300 MG ON DAY 0 AND 14, THEN 600 MG EVERY 6 MONTHS?ON 30/JUN/2018, SHE RECEIVED
     Route: 042
     Dates: start: 20180530
  2. OCREVUS [Suspect]
     Active Substance: OCRELIZUMAB
     Dosage: #4
     Route: 042
     Dates: start: 20190723
  3. OCREVUS [Suspect]
     Active Substance: OCRELIZUMAB
     Dosage: #5
     Route: 042
     Dates: start: 20200120
  4. OCREVUS [Suspect]
     Active Substance: OCRELIZUMAB
     Route: 042
     Dates: start: 20200812
  5. OCREVUS [Suspect]
     Active Substance: OCRELIZUMAB
     Dosage: INFUSION NUMBER: 7
     Route: 042
     Dates: start: 20210211
  6. OCREVUS [Suspect]
     Active Substance: OCRELIZUMAB
     Route: 042
     Dates: start: 20210819
  7. ACETAMINOPHEN [Concomitant]
     Active Substance: ACETAMINOPHEN
     Route: 048
  8. ACETAMINOPHEN [Concomitant]
     Active Substance: ACETAMINOPHEN
     Dosage: 20/JAN/2020
     Route: 048
  9. ASPIRIN [Concomitant]
     Active Substance: ASPIRIN
  10. SYNTHROID [Concomitant]
     Active Substance: LEVOTHYROXINE SODIUM
     Indication: Hypothyroidism
     Dosage: 0.025 MG ONCE DAILY
     Route: 042
     Dates: start: 2007
  11. DULOXETINE [Concomitant]
     Active Substance: DULOXETINE
     Indication: Depression
     Dosage: SINCE 6 MONTHS TO 1 YEAR
  12. DULOXETINE [Concomitant]
     Active Substance: DULOXETINE
     Indication: Pain
  13. MORPHINE SULFATE [Concomitant]
     Active Substance: MORPHINE SULFATE
     Indication: Pain
  14. SODIUM CHLORIDE [Concomitant]
     Active Substance: SODIUM CHLORIDE
     Dosage: 0.9% 100 CC
  15. METHYLPREDNISOLONE [Concomitant]
     Active Substance: METHYLPREDNISOLONE
     Indication: Premedication
     Route: 042
  16. DEPO-PROVERA [Concomitant]
     Active Substance: MEDROXYPROGESTERONE ACETATE
  17. BENADRYL [Concomitant]
     Active Substance: DIPHENHYDRAMINE HYDROCHLORIDE
     Indication: Premedication
     Dosage: 20/JAN/2020
     Route: 048
  18. BENADRYL [Concomitant]
     Active Substance: DIPHENHYDRAMINE HYDROCHLORIDE
     Route: 048
  19. NICODERM CQ [Concomitant]
     Active Substance: NICOTINE
  20. SAXENDA [Concomitant]
     Active Substance: LIRAGLUTIDE

REACTIONS (36)
  - Memory impairment [Not Recovered/Not Resolved]
  - Infusion related reaction [Recovered/Resolved]
  - Headache [Recovering/Resolving]
  - Pain in extremity [Recovering/Resolving]
  - Fatigue [Recovered/Resolved]
  - Skin plaque [Not Recovered/Not Resolved]
  - Oropharyngeal pain [Not Recovered/Not Resolved]
  - Illness [Not Recovered/Not Resolved]
  - Nasopharyngitis [Not Recovered/Not Resolved]
  - Nasal congestion [Recovering/Resolving]
  - Pruritus [Not Recovered/Not Resolved]
  - Skin exfoliation [Not Recovered/Not Resolved]
  - Palpitations [Not Recovered/Not Resolved]
  - Hypertension [Unknown]
  - Memory impairment [Not Recovered/Not Resolved]
  - Hot flush [Recovering/Resolving]
  - Bronchitis [Recovering/Resolving]
  - Stress [Not Recovered/Not Resolved]
  - Influenza [Not Recovered/Not Resolved]
  - Rosacea [Unknown]
  - Infusion related reaction [Recovered/Resolved]
  - Rash [Recovering/Resolving]
  - Weight loss poor [Not Recovered/Not Resolved]
  - Acne [Recovering/Resolving]
  - Attention deficit hyperactivity disorder [Not Recovered/Not Resolved]
  - Pain [Not Recovered/Not Resolved]
  - Tachycardia [Unknown]
  - Impatience [Recovered/Resolved]
  - Irritability [Recovered/Resolved]
  - Breast mass [Unknown]
  - Asthenia [Unknown]
  - Anxiety [Unknown]
  - Disturbance in attention [Unknown]
  - Heart rate increased [Unknown]
  - Hypersensitivity [Unknown]
  - Infusion related reaction [Recovered/Resolved]

NARRATIVE: CASE EVENT DATE: 20180530
